FAERS Safety Report 7513377-5 (Version None)
Quarter: 2011Q2

REPORT INFORMATION
  Report Type: 
  Country: None (occurrence: None)
  Receive Date: 20110525
  Receipt Date: 20110525
  Transmission Date: 20111010
  Serious: Yes (Other)
  Sender: FDA-Public Use
  Company Number: None

PATIENT
  Sex: Female
  Weight: 66.4066 kg

DRUGS (1)
  1. OXYCODONE AND ACETAMINOPHEN [Suspect]
     Indication: OSTEOARTHRITIS
     Dosage: OXYCODONE/ACETAMINOPHEN 5/325 PO
     Route: 048
     Dates: start: 20020101

REACTIONS (4)
  - AGITATION [None]
  - DELIRIUM [None]
  - HEADACHE [None]
  - SWELLING [None]
